FAERS Safety Report 9915702 (Version 1)
Quarter: 2014Q1

REPORT INFORMATION
  Report Type: Spontaneous
  Country: US (occurrence: None)
  Receive Date: 20140219
  Receipt Date: 20140219
  Transmission Date: 20141002
  Serious: Yes (Other)
  Sender: FDA-Public Use
  Company Number: None

PATIENT
  Age: 81 Year
  Sex: Female
  Weight: 51.26 kg

DRUGS (13)
  1. VENLAFAXINE HYDROCHLORIDE [Suspect]
     Indication: AXONAL NEUROPATHY
     Route: 048
     Dates: start: 20140127, end: 20140131
  2. HCTZ [Concomitant]
  3. POTASSIUM CHLORIDE [Concomitant]
  4. ESTRACE [Concomitant]
  5. FLURAZAPAM (DALMANE) [Concomitant]
  6. MULTIVITAMIN [Concomitant]
  7. METAMUCIL [Concomitant]
  8. KEFIR + DANACTIVE PROBIOTICS [Concomitant]
  9. VIT D [Concomitant]
  10. VSL [Concomitant]
  11. CRANBERRY [Concomitant]
  12. OMEGA 3 [Concomitant]
  13. FISH OIL [Concomitant]

REACTIONS (1)
  - Drug eruption [None]
